FAERS Safety Report 4779602-9 (Version None)
Quarter: 2005Q3

REPORT INFORMATION
  Report Type: 
  Country: None (occurrence: None)
  Receive Date: 20050914
  Receipt Date: 20050706
  Transmission Date: 20060218
  Serious: Yes (Life-Threatening, Hospitalization)
  Sender: FDA-Public Use
  Company Number: 163-20785-04060514

PATIENT
  Age: 67 Year
  Sex: Male
  Weight: 87.9 kg

DRUGS (13)
  1. THALOMID [Suspect]
     Indication: MULTIPLE MYELOMA
     Dosage: 200-400MG, DAILY  INDUCTION PHASE, STARTING DAY 4, ORAL; 200-400MG, MAINTENANCE PHASE, DAILY, ORAL
     Route: 048
     Dates: start: 20021202, end: 20030113
  2. THALOMID [Suspect]
     Indication: MULTIPLE MYELOMA
     Dosage: 200-400MG, DAILY  INDUCTION PHASE, STARTING DAY 4, ORAL; 200-400MG, MAINTENANCE PHASE, DAILY, ORAL
     Route: 048
     Dates: start: 20030227, end: 20041201
  3. COUMADIN [Suspect]
     Indication: ANTICOAGULANT THERAPY
     Dosage: 7.5 MG, DAILY, ORAL
     Route: 048
     Dates: start: 20040501, end: 20040601
  4. GENASENSE [Suspect]
     Indication: MULTIPLE MYELOMA
     Dosage: 7 MG/KG/DAY INDUCTION PHASE, DAYS 1-7, 22-28 AND 43-49, INTRAVENOUS DRIP; 3MG/KG DAY MAINTENANCE PHA
     Route: 041
     Dates: start: 20021202, end: 20030113
  5. GENASENSE [Suspect]
     Indication: MULTIPLE MYELOMA
     Dosage: 7 MG/KG/DAY INDUCTION PHASE, DAYS 1-7, 22-28 AND 43-49, INTRAVENOUS DRIP; 3MG/KG DAY MAINTENANCE PHA
     Route: 041
     Dates: start: 20030227, end: 20041201
  6. DEXAMETHASONE [Suspect]
     Indication: MULTIPLE MYELOMA
     Dosage: 40 MG DAILY, INDUCTION PHASE, DAYS 1-7, 25-28 AND 46-49, ORAL;  20 MG DAILY, MAINTENANCE PHASE, DAYS
     Route: 048
     Dates: start: 20021202, end: 20030113
  7. DEXAMETHASONE [Suspect]
     Indication: MULTIPLE MYELOMA
     Dosage: 40 MG DAILY, INDUCTION PHASE, DAYS 1-7, 25-28 AND 46-49, ORAL;  20 MG DAILY, MAINTENANCE PHASE, DAYS
     Route: 048
     Dates: start: 20030302, end: 20041201
  8. AMBIEN [Concomitant]
  9. NEURONTIN [Concomitant]
  10. OXYCONTIN [Concomitant]
  11. PERCOCET [Concomitant]
  12. PREVACID [Concomitant]
  13. ACYCLOVIR [Concomitant]

REACTIONS (12)
  - ACTIVATED PARTIAL THROMBOPLASTIN TIME PROLONGED [None]
  - ANAEMIA [None]
  - ASTHENIA [None]
  - BLOOD CREATININE INCREASED [None]
  - FATIGUE [None]
  - HYPOTENSION [None]
  - INFECTION [None]
  - INTERNATIONAL NORMALISED RATIO INCREASED [None]
  - PROTHROMBIN TIME PROLONGED [None]
  - RASH [None]
  - RECTAL HAEMORRHAGE [None]
  - WHITE BLOOD CELL COUNT DECREASED [None]
